FAERS Safety Report 7391741-5 (Version None)
Quarter: 2011Q2

REPORT INFORMATION
  Report Type: 
  Country: None (occurrence: None)
  Receive Date: 20110404
  Receipt Date: 20110328
  Transmission Date: 20111010
  Serious: Yes (Other)
  Sender: FDA-Public Use
  Company Number: GB-PFIZER INC-2011067947

PATIENT

DRUGS (1)
  1. DEPO-PROVERA [Suspect]

REACTIONS (2)
  - GALLBLADDER DISORDER [None]
  - CHOLESTASIS [None]
